FAERS Safety Report 11241347 (Version 1)
Quarter: 2015Q3

REPORT INFORMATION
  Report Type: Spontaneous
  Country: US (occurrence: US)
  Receive Date: 20150706
  Receipt Date: 20150706
  Transmission Date: 20151125
  Serious: Yes (Death, Life-Threatening)
  Sender: FDA-Public Use
  Company Number: US-ROXANE LABORATORIES, INC.-2015-RO-01089RO

PATIENT
  Age: 28 Year
  Sex: Female

DRUGS (1)
  1. FLECAINIDE [Suspect]
     Active Substance: FLECAINIDE
     Indication: ATRIAL TACHYCARDIA
     Dosage: PLACED ON 100 MG DAILY
     Route: 048

REACTIONS (4)
  - Intentional overdose [Fatal]
  - Pulseless electrical activity [Fatal]
  - Multi-organ failure [Unknown]
  - Toxicity to various agents [Unknown]
